FAERS Safety Report 23880256 (Version 1)
Quarter: 2024Q2

REPORT INFORMATION
  Report Type: Spontaneous
  Country: BR (occurrence: BR)
  Receive Date: 20240521
  Receipt Date: 20240521
  Transmission Date: 20240715
  Serious: Yes (Death, Other)
  Sender: FDA-Public Use
  Company Number: BR-AMGEN-BRASP2024097949

PATIENT

DRUGS (4)
  1. ADALIMUMAB [Suspect]
     Active Substance: ADALIMUMAB\ISOPROPYL ALCOHOL
     Indication: Crohn^s disease
     Dosage: UNK
     Route: 065
  2. ADALIMUMAB [Suspect]
     Active Substance: ADALIMUMAB\ISOPROPYL ALCOHOL
     Indication: Colitis ulcerative
  3. INFLIXIMAB [Suspect]
     Active Substance: INFLIXIMAB
     Indication: Colitis ulcerative
     Dosage: UNK
     Route: 065
  4. INFLIXIMAB [Suspect]
     Active Substance: INFLIXIMAB
     Indication: Crohn^s disease

REACTIONS (11)
  - Death [Fatal]
  - Colitis ulcerative [Unknown]
  - Crohn^s disease [Unknown]
  - Cholangitis [Unknown]
  - Hepatocellular carcinoma [Unknown]
  - Neoplasm malignant [Unknown]
  - Gallbladder cancer [Unknown]
  - Colorectal cancer [Unknown]
  - Cytomegalovirus infection [Unknown]
  - Autoimmune hepatitis [Unknown]
  - Thrombocytopenic purpura [Unknown]
